FAERS Safety Report 4955547-6 (Version None)
Quarter: 2006Q1

REPORT INFORMATION
  Report Type: 
  Country: None (occurrence: None)
  Receive Date: 20060328
  Receipt Date: 20060321
  Transmission Date: 20060701
  Serious: Yes (Hospitalization)
  Sender: FDA-Public Use
  Company Number: US-KINGPHARMUSA00001-K200600361

PATIENT
  Age: 83 Year
  Sex: Male

DRUGS (8)
  1. ALTACE [Suspect]
     Route: 048
     Dates: start: 20040901, end: 20051015
  2. ZYPREXA [Suspect]
     Route: 048
     Dates: start: 20040101, end: 20051015
  3. FONZYLANE [Concomitant]
     Dosage: UNK, QD
     Route: 048
     Dates: start: 20041201
  4. ATENOLOL [Concomitant]
     Route: 048
  5. ZOPICLONE [Concomitant]
     Route: 048
     Dates: start: 20040901
  6. VASTEN [Concomitant]
  7. URBANYL [Concomitant]
  8. ZYLORIC ^FAES^ [Concomitant]

REACTIONS (10)
  - AFFECTIVE DISORDER [None]
  - AGITATION [None]
  - ANXIETY [None]
  - BLOOD CREATININE INCREASED [None]
  - BLOOD PRESSURE SYSTOLIC DECREASED [None]
  - CONFUSIONAL STATE [None]
  - FALL [None]
  - HYPONATRAEMIA [None]
  - ISCHAEMIC CARDIOMYOPATHY [None]
  - RENAL FAILURE [None]
